FAERS Safety Report 4486593-7 (Version None)
Quarter: 2004Q4

REPORT INFORMATION
  Report Type: 
  Country: None (occurrence: None)
  Receive Date: 20041022
  Receipt Date: 20041006
  Transmission Date: 20050328
  Serious: Yes (Death)
  Sender: FDA-Public Use
  Company Number: 2004-BP-09643RO

PATIENT
  Age: 22 Year
  Sex: Male

DRUGS (3)
  1. MORPHINE SUL TAB [Suspect]
     Dosage: IV
     Route: 042
  2. PROPOXYPHENE (DEXTROPROPOXYPHENE) [Suspect]
  3. BARBITURATES (BARBITURATES) [Suspect]

REACTIONS (3)
  - DRUG TOXICITY [None]
  - MEDICATION ERROR [None]
  - OVERDOSE [None]
